FAERS Safety Report 7463730-3 (Version None)
Quarter: 2011Q2

REPORT INFORMATION
  Report Type: 
  Country: None (occurrence: None)
  Receive Date: 20110506
  Receipt Date: 20110103
  Transmission Date: 20111010
  Serious: Yes (Hospitalization, Other)
  Sender: FDA-Public Use
  Company Number: US-BAYER-201037654NA

PATIENT
  Age: 23 Year
  Sex: Female
  Weight: 113.38 kg

DRUGS (9)
  1. MYTREX [Concomitant]
     Indication: VULVOVAGINITIS
     Dosage: UNK
     Route: 061
     Dates: start: 20080709
  2. KEFLEX [Concomitant]
     Dosage: UNK
     Route: 048
     Dates: start: 20081022
  3. DROSPIRENONE AND ETHINYL ESTRADIOL [Suspect]
     Indication: PRODUCT USED FOR UNKNOWN INDICATION
     Dosage: UNK
     Dates: start: 20080301, end: 20081001
  4. DIFLUCAN [Concomitant]
     Indication: VULVOVAGINITIS
     Dosage: 150 MG, UNK
     Route: 048
     Dates: start: 20080709
  5. YASMIN [Suspect]
     Indication: ORAL CONTRACEPTION
     Dosage: UNK
     Route: 048
     Dates: start: 20080301, end: 20081001
  6. YASMIN [Suspect]
     Indication: POLYCYSTIC OVARIES
  7. LORTAB [Concomitant]
     Dosage: UNK
     Route: 048
     Dates: start: 20081022
  8. BACTRIM [Concomitant]
     Dosage: UNK
     Route: 048
     Dates: start: 20081022
  9. CIPROFLOXACIN [Concomitant]
     Dosage: 500 MG, BID
     Route: 048
     Dates: start: 20080324

REACTIONS (2)
  - OEDEMA PERIPHERAL [None]
  - DEEP VEIN THROMBOSIS [None]
